FAERS Safety Report 24772976 (Version 2)
Quarter: 2025Q1

REPORT INFORMATION
  Report Type: Report from Study
  Country: US (occurrence: US)
  Receive Date: 20241225
  Receipt Date: 20250220
  Transmission Date: 20250409
  Serious: Yes (Hospitalization, Other)
  Sender: AUROBINDO
  Company Number: US-AUROBINDO-AUR-APL-2024-063609

PATIENT
  Sex: Female
  Weight: 65.41 kg

DRUGS (3)
  1. BELINOSTAT [Suspect]
     Active Substance: BELINOSTAT
     Indication: Non-Hodgkin^s lymphoma
     Route: 065
     Dates: start: 20241107, end: 20241129
  2. BELINOSTAT [Suspect]
     Active Substance: BELINOSTAT
     Route: 065
  3. TAZEMETOSTAT [Suspect]
     Active Substance: TAZEMETOSTAT
     Indication: Product used for unknown indication
     Route: 065
     Dates: start: 20241108, end: 20241201

REACTIONS (5)
  - Malignant pleural effusion [Recovered/Resolved]
  - Pleural effusion [Unknown]
  - Vomiting [Unknown]
  - Neutrophil count decreased [Unknown]
  - Platelet count decreased [Unknown]

NARRATIVE: CASE EVENT DATE: 20241109
